FAERS Safety Report 4490610-8 (Version None)
Quarter: 2004Q4

REPORT INFORMATION
  Report Type: 
  Country: None (occurrence: None)
  Receive Date: 20041027
  Receipt Date: 20041005
  Transmission Date: 20050328
  Serious: No
  Sender: FDA-Public Use
  Company Number: 29564

PATIENT

DRUGS (1)
  1. BSS PLUS [Suspect]
     Indication: SURGERY
     Dosage: IO
     Route: 031

REACTIONS (2)
  - PHARMACEUTICAL PRODUCT COMPLAINT [None]
  - VISUAL FIELD DEFECT [None]
